FAERS Safety Report 14884532 (Version 3)
Quarter: 2019Q2

REPORT INFORMATION
  Report Type: Report from Study
  Country: US (occurrence: US)
  Receive Date: 20180511
  Receipt Date: 20190513
  Transmission Date: 20190711
  Serious: Yes (Hospitalization, Other)
  Sender: FDA-Public Use
  Company Number: US-TAKEDA-2018TUS016274

PATIENT
  Sex: Male

DRUGS (3)
  1. PONATINIB [Suspect]
     Active Substance: PONATINIB
     Dosage: 15 MG, BID
     Route: 048
  2. PONATINIB [Suspect]
     Active Substance: PONATINIB
     Indication: ACUTE LYMPHOCYTIC LEUKAEMIA
     Dosage: 30 MG, QD
     Route: 048
     Dates: start: 20170427
  3. PONATINIB [Suspect]
     Active Substance: PONATINIB
     Dosage: 15 MILLIGRAM, QD
     Route: 048

REACTIONS (16)
  - Acute lymphocytic leukaemia recurrent [Unknown]
  - Paranasal sinus discomfort [Unknown]
  - Pericardial effusion [Recovering/Resolving]
  - Rash maculo-papular [Unknown]
  - Skin hyperpigmentation [Unknown]
  - Vitamin D decreased [Unknown]
  - Graft versus host disease in skin [Unknown]
  - Thrombocytopenia [Unknown]
  - Septic shock [Unknown]
  - Blood testosterone decreased [Unknown]
  - Dry eye [Unknown]
  - Pericarditis [Unknown]
  - Erectile dysfunction [Recovering/Resolving]
  - Rash [Recovering/Resolving]
  - Rhinitis [Unknown]
  - Abdominal pain [Recovering/Resolving]
